FAERS Safety Report 24011118 (Version 1)
Quarter: 2024Q2

REPORT INFORMATION
  Report Type: Spontaneous
  Country: US (occurrence: None)
  Receive Date: 20240625
  Receipt Date: 20240625
  Transmission Date: 20240716
  Serious: Yes (unspecified)
  Sender: FDA-Public Use
  Company Number: None

PATIENT
  Age: 20 Year
  Sex: Male
  Weight: 58.5 kg

DRUGS (1)
  1. HERBALS\MUSHROOMS UNSPECIFIED [Suspect]
     Active Substance: HERBALS\MUSHROOMS UNSPECIFIED
     Indication: Relaxation therapy
     Dosage: OTHER QUANTITY : 8 SQUARES;?
     Route: 048
     Dates: start: 20240427, end: 20240427

REACTIONS (2)
  - Seizure [None]
  - Incoherent [None]

NARRATIVE: CASE EVENT DATE: 20240427
